FAERS Safety Report 7682062-1 (Version None)
Quarter: 2011Q3

REPORT INFORMATION
  Report Type: 
  Country: None (occurrence: None)
  Receive Date: 20110810
  Receipt Date: 20110803
  Transmission Date: 20111222
  Serious: Yes (Hospitalization)
  Sender: FDA-Public Use
  Company Number: 2011SP033439

PATIENT
  Age: 58 Year
  Sex: Female

DRUGS (10)
  1. AMITRIPTYLINE HCL [Concomitant]
  2. REBETOL (RIBAVIRIN /00816701/) [Suspect]
     Indication: HEPATITIS C
     Dosage: 1000 MG; QD; PO
     Route: 048
     Dates: end: 20090101
  3. REBETOL (RIBAVIRIN /00816701/) [Suspect]
     Indication: HEPATITIS C
     Dosage: 1000 MG; QD; PO
     Route: 048
     Dates: start: 20110111, end: 20110707
  4. LEXOTAN [Concomitant]
  5. LEVOTHYROXINE SODIUM [Concomitant]
  6. ZOLOFT [Concomitant]
  7. DEURSIL [Concomitant]
  8. PEGASYS [Suspect]
     Indication: HEPATITIS C
     Dosage: 180 MCG;QW;SC
     Route: 058
     Dates: start: 20110111, end: 20110705
  9. OMEPRAZOLE [Concomitant]
  10. INTERFERON ALFA-2B RECOMBINANT (INTERFERON ALFA-2B) [Suspect]
     Indication: HEPATITIS C
     Dates: start: 20090101

REACTIONS (19)
  - MOOD ALTERED [None]
  - CONDITION AGGRAVATED [None]
  - URTICARIA [None]
  - HEPATIC CIRRHOSIS [None]
  - ASTHENIA [None]
  - HEPATITIS C [None]
  - ABDOMINAL PAIN UPPER [None]
  - AGGRESSION [None]
  - PSYCHOMOTOR RETARDATION [None]
  - SUBARACHNOID HAEMORRHAGE [None]
  - DISEASE RECURRENCE [None]
  - GRAVITATIONAL OEDEMA [None]
  - BRONCHOPNEUMONIA [None]
  - HEAD INJURY [None]
  - HYPERAMMONAEMIA [None]
  - MENTAL DISORDER [None]
  - DROP ATTACKS [None]
  - MIGRAINE [None]
  - LEUKOPENIA [None]
